FAERS Safety Report 12818648 (Version 2)
Quarter: 2016Q4

REPORT INFORMATION
  Report Type: Report from Study
  Country: US (occurrence: US)
  Receive Date: 20161006
  Receipt Date: 20161014
  Transmission Date: 20170207
  Serious: Yes (Other)
  Sender: FDA-Public Use
  Company Number: US-ROCHE-1837690

PATIENT
  Age: 60 Year
  Sex: Male
  Weight: 72.1 kg

DRUGS (27)
  1. AMLODIPINE [Concomitant]
     Active Substance: AMLODIPINE BESYLATE
     Indication: HYPERTENSION
     Route: 065
     Dates: start: 201311
  2. FILGRASTIM [Concomitant]
     Active Substance: FILGRASTIM
     Indication: FEBRILE NEUTROPENIA
     Route: 065
     Dates: start: 20160829, end: 20160830
  3. CARVEDILOL. [Concomitant]
     Active Substance: CARVEDILOL
     Indication: HYPERTENSION
     Route: 065
     Dates: start: 201311
  4. ACETAMINOPHEN. [Concomitant]
     Active Substance: ACETAMINOPHEN
     Indication: HEADACHE
     Dosage: INDICATION: FEVER
     Route: 065
     Dates: start: 20160826, end: 20160826
  5. AZITHROMYCIN ANHYDROUS. [Concomitant]
     Active Substance: AZITHROMYCIN ANHYDROUS
     Indication: INFECTION PROPHYLAXIS
     Route: 065
     Dates: start: 20160827, end: 20160827
  6. ATEZOLIZUMAB [Suspect]
     Active Substance: ATEZOLIZUMAB
     Indication: NON-SMALL CELL LUNG CANCER STAGE IV
     Dosage: THE MOST RECENT DOSE OF ATEZOLIZUMAB, 1200 MG, WAS ADMINISTERED ON 01/SEP/2016.
     Route: 042
     Dates: start: 20160811
  7. PROCHLORPERAZINE. [Concomitant]
     Active Substance: PROCHLORPERAZINE
     Indication: PROPHYLAXIS OF NAUSEA AND VOMITING
     Route: 065
     Dates: start: 20160811
  8. ACETAMINOPHEN. [Concomitant]
     Active Substance: ACETAMINOPHEN
     Indication: PAIN
     Dosage: INDICATION: GENERAL BODY ACHE, HEADACHE
     Route: 065
     Dates: start: 20160814
  9. LORATADINE. [Concomitant]
     Active Substance: LORATADINE
     Indication: PROPHYLAXIS
     Route: 065
     Dates: start: 20160829
  10. TBO-FILGRASTIM [Concomitant]
     Active Substance: TBO-FILGRASTIM
     Indication: FEBRILE NEUTROPENIA
     Route: 065
     Dates: start: 20160827, end: 20160827
  11. CEFTRIAXONE. [Concomitant]
     Active Substance: CEFTRIAXONE
     Indication: INFECTION PROPHYLAXIS
     Route: 065
     Dates: start: 20160827, end: 20160827
  12. ASPIRIN. [Concomitant]
     Active Substance: ASPIRIN
     Indication: PROPHYLAXIS
     Route: 065
     Dates: start: 20160807
  13. ONDANSETRON [Concomitant]
     Active Substance: ONDANSETRON
     Indication: PROPHYLAXIS OF NAUSEA AND VOMITING
     Route: 065
     Dates: start: 20160812
  14. MELATONIN [Concomitant]
     Active Substance: MELATONIN
     Indication: ANXIETY
     Route: 065
     Dates: start: 20160826
  15. BEVACIZUMAB [Suspect]
     Active Substance: BEVACIZUMAB
     Indication: NON-SMALL CELL LUNG CANCER STAGE IV
     Dosage: DATE OF LAST DOSE PRIOR TO SAE/AESI - 01/SEP/2016?LAST DOSE ADMINISTERED - 1093.5MG
     Route: 042
     Dates: start: 20160811
  16. CANNABIS [Concomitant]
     Active Substance: CANNABIS SATIVA SUBSP. INDICA TOP
     Indication: CANCER PAIN
     Route: 065
     Dates: start: 20160729
  17. ASPIRIN. [Concomitant]
     Active Substance: ASPIRIN
     Route: 065
     Dates: start: 20160808
  18. LORAZEPAM. [Concomitant]
     Active Substance: LORAZEPAM
     Indication: ANXIETY
     Route: 065
     Dates: start: 20160830
  19. PACLITAXEL. [Suspect]
     Active Substance: PACLITAXEL
     Indication: NON-SMALL CELL LUNG CANCER STAGE IV
     Dosage: DATE OF MOST RECENT DOSE OF PACLITAXEL PRIOR TO AE ONSET - 01/SEP/2016?DOSE OF LAST PACLITAXEL ADMIN
     Route: 042
     Dates: start: 20160811
  20. CARBOPLATIN. [Suspect]
     Active Substance: CARBOPLATIN
     Indication: NON-SMALL CELL LUNG CANCER STAGE IV
     Dosage: UNIT DOSE REPORTED AS AUC OF 6MG/ML/MIN?DATE OF MOST RECENT DOSE OF CARBOPLATIN PRIOR TO AE ONSET -
     Route: 042
     Dates: start: 20160811
  21. LIDOCAINE. [Concomitant]
     Active Substance: LIDOCAINE
     Indication: CATHETER SITE PAIN
     Dosage: DOSE REPORTED AS 1 APP
     Route: 065
     Dates: start: 20160811
  22. ACETAMINOPHEN. [Concomitant]
     Active Substance: ACETAMINOPHEN
     Indication: PYREXIA
  23. OMEPRAZOLE. [Concomitant]
     Active Substance: OMEPRAZOLE
     Indication: GASTROOESOPHAGEAL REFLUX DISEASE
     Route: 065
     Dates: start: 20160812
  24. LOPERAMIDE [Concomitant]
     Active Substance: LOPERAMIDE
     Indication: DIARRHOEA
     Route: 065
     Dates: start: 20160831
  25. LEVOFLOXACIN. [Concomitant]
     Active Substance: LEVOFLOXACIN
     Indication: INFECTION PROPHYLAXIS
     Route: 065
     Dates: start: 20160828
  26. MELATONIN [Concomitant]
     Active Substance: MELATONIN
     Route: 065
     Dates: start: 20160926
  27. PEGFILGRASTIM [Concomitant]
     Active Substance: PEGFILGRASTIM
     Indication: PROPHYLAXIS
     Route: 065
     Dates: start: 20160901, end: 20160901

REACTIONS (2)
  - Aspartate aminotransferase increased [Recovered/Resolved]
  - Alanine aminotransferase increased [Not Recovered/Not Resolved]

NARRATIVE: CASE EVENT DATE: 20160831
